FAERS Safety Report 12205502 (Version 1)
Quarter: 2016Q1

REPORT INFORMATION
  Report Type: Spontaneous
  Country: DE (occurrence: DE)
  Receive Date: 20160323
  Receipt Date: 20160323
  Transmission Date: 20160526
  Serious: Yes (Hospitalization, Other)
  Sender: FDA-Public Use
  Company Number: GXKR2016DE001487

PATIENT
  Age: 91 Year
  Sex: Female
  Weight: 46 kg

DRUGS (3)
  1. RISPERIDON ? 1 A PHARMA [Suspect]
     Active Substance: RISPERIDONE
     Dosage: 3 MG, QD
     Route: 048
  2. RISPERIDON ? 1 A PHARMA [Suspect]
     Active Substance: RISPERIDONE
     Indication: DEMENTIA
     Dosage: 1.5 MG, QD
     Route: 048
     Dates: start: 201404
  3. RISPERIDON ? 1 A PHARMA [Suspect]
     Active Substance: RISPERIDONE
     Dosage: 2 MG, QD

REACTIONS (9)
  - Intraocular pressure increased [Unknown]
  - Visual impairment [Unknown]
  - Muscle twitching [Unknown]
  - Retinal detachment [Unknown]
  - Unresponsive to stimuli [Unknown]
  - Oropharyngeal pain [Unknown]
  - Restlessness [Unknown]
  - Dysphonia [Unknown]
  - Gait disturbance [Unknown]

NARRATIVE: CASE EVENT DATE: 201512
